FAERS Safety Report 9375569 (Version 1)
Quarter: 2013Q2

REPORT INFORMATION
  Report Type: Spontaneous
  Country: IT (occurrence: IT)
  Receive Date: 20130628
  Receipt Date: 20130628
  Transmission Date: 20140414
  Serious: Yes (Other)
  Sender: FDA-Public Use
  Company Number: IT-JNJFOC-20130613258

PATIENT
  Sex: Male

DRUGS (2)
  1. RISPERDAL [Suspect]
     Indication: MENTAL DISORDER
     Route: 065
  2. ZOLOFT [Suspect]
     Indication: MENTAL DISORDER
     Route: 065

REACTIONS (1)
  - Suicidal ideation [Not Recovered/Not Resolved]
